FAERS Safety Report 7797511-8 (Version None)
Quarter: 2011Q4

REPORT INFORMATION
  Report Type: 
  Country: None (occurrence: None)
  Receive Date: 20111003
  Receipt Date: 20110919
  Transmission Date: 20120403
  Serious: Yes (Other)
  Sender: FDA-Public Use
  Company Number: 2011AP002119

PATIENT
  Age: 39 Year
  Sex: Female

DRUGS (2)
  1. CITALOPRAM HYDROBROMIDE [Suspect]
     Indication: ANXIETY
     Dosage: 10 MG; PO
     Route: 048
     Dates: start: 20110720, end: 20110720
  2. PENICILLIN /00000901/ (BENZYLPENICILLIN) [Concomitant]

REACTIONS (12)
  - OEDEMA [None]
  - VOMITING [None]
  - SENSORY LOSS [None]
  - BLOOD PRESSURE INCREASED [None]
  - PAIN IN JAW [None]
  - NAUSEA [None]
  - HYPERTENSION [None]
  - NEPHRITIS [None]
  - FACIAL PAIN [None]
  - DIARRHOEA [None]
  - FACE OEDEMA [None]
  - TENSION HEADACHE [None]
